FAERS Safety Report 6375755-X (Version None)
Quarter: 2009Q3

REPORT INFORMATION
  Report Type: 
  Country: None (occurrence: None)
  Receive Date: 20090922
  Receipt Date: 20090922
  Transmission Date: 20100115
  Serious: Yes (Other)
  Sender: FDA-Public Use
  Company Number: None

PATIENT
  Age: 39 Year
  Sex: Female
  Weight: 71.6683 kg

DRUGS (4)
  1. HYDROCODONE BITARTRATE AND ACETAMINOPHEN [Suspect]
     Indication: CARPAL TUNNEL SYNDROME
     Dosage: 1 TABLET EVER FOUR HOURS
     Dates: start: 20090917, end: 20090921
  2. HYDROCODONE BITARTRATE AND ACETAMINOPHEN [Suspect]
     Indication: SPINAL DECOMPRESSION
     Dosage: 1 TABLET EVER FOUR HOURS
     Dates: start: 20090917, end: 20090921
  3. HYDROCODONE BITARTRATE AND ACETAMINOPHEN [Suspect]
     Indication: TENDONITIS
     Dosage: 1 TABLET EVER FOUR HOURS
     Dates: start: 20090917, end: 20090921
  4. LORTAB [Suspect]

REACTIONS (8)
  - DRUG INTOLERANCE [None]
  - DYSPEPSIA [None]
  - HEADACHE [None]
  - MALAISE [None]
  - NAUSEA [None]
  - PRODUCT FORMULATION ISSUE [None]
  - PRODUCT SUBSTITUTION ISSUE [None]
  - TINNITUS [None]
